FAERS Safety Report 12838199 (Version 2)
Quarter: 2016Q4

REPORT INFORMATION
  Report Type: Report from Study
  Country: BR (occurrence: BR)
  Receive Date: 20161012
  Receipt Date: 20161026
  Transmission Date: 20170207
  Serious: Yes (Hospitalization, Other)
  Sender: FDA-Public Use
  Company Number: PHHY2016BR140107

PATIENT
  Sex: Female

DRUGS (1)
  1. ACLASTA [Suspect]
     Active Substance: ZOLEDRONIC ACID
     Indication: OSTEOPOROSIS
     Dosage: 5 MG, UNK
     Route: 042
     Dates: start: 20161005

REACTIONS (7)
  - Gait disturbance [Unknown]
  - Dementia [Unknown]
  - Malaise [Unknown]
  - Memory impairment [Unknown]
  - Speech disorder [Unknown]
  - Mobility decreased [Unknown]
  - Tremor [Unknown]
